FAERS Safety Report 4336471-9 (Version None)
Quarter: 2004Q2

REPORT INFORMATION
  Report Type: 
  Country: None (occurrence: None)
  Receive Date: 20040407
  Receipt Date: 20040319
  Transmission Date: 20050107
  Serious: Yes (Other)
  Sender: FDA-Public Use
  Company Number: USA040362592

PATIENT
  Age: 45 Year
  Sex: Female

DRUGS (1)
  1. ZYPREXA [Suspect]
     Dosage: 5 MG IN THE EVENING

REACTIONS (4)
  - BREAST CANCER [None]
  - CONFUSIONAL STATE [None]
  - DEPRESSION [None]
  - SOMNOLENCE [None]
